FAERS Safety Report 4964446-5 (Version None)
Quarter: 2006Q2

REPORT INFORMATION
  Report Type: 
  Country: None (occurrence: None)
  Receive Date: 20060406
  Receipt Date: 20060330
  Transmission Date: 20061013
  Serious: Yes (Hospitalization)
  Sender: FDA-Public Use
  Company Number: 2006CG00603

PATIENT
  Age: 57 Year
  Sex: Female

DRUGS (7)
  1. MOPRAL [Suspect]
     Route: 048
     Dates: end: 20060223
  2. ACETAMINOPHEN W/ PROPOXYPHENE HCL [Suspect]
     Route: 048
     Dates: start: 20060220, end: 20060223
  3. PREVISCAN [Suspect]
     Dates: start: 20060221
  4. TRIATEC [Concomitant]
  5. CARDENSIEL [Concomitant]
  6. TAHOR [Concomitant]
  7. INNOHEP [Concomitant]

REACTIONS (4)
  - BLOOD ALKALINE PHOSPHATASE INCREASED [None]
  - BLOOD LACTATE DEHYDROGENASE INCREASED [None]
  - CHOLESTASIS [None]
  - GAMMA-GLUTAMYLTRANSFERASE INCREASED [None]
